FAERS Safety Report 6490437-1 (Version None)
Quarter: 2009Q4

REPORT INFORMATION
  Report Type: 
  Country: None (occurrence: None)
  Receive Date: 20091208
  Receipt Date: 20091123
  Transmission Date: 20100525
  Serious: Yes (Other)
  Sender: FDA-Public Use
  Company Number: 232752J09USA

PATIENT
  Age: 45 Year
  Sex: Female
  Weight: 65 kg

DRUGS (14)
  1. REBIF [Suspect]
     Indication: MULTIPLE SCLEROSIS
     Dosage: 44 MCG, 3 IN 1 WEEKS, SUBCUTANEOUS
     Route: 058
     Dates: start: 20050216
  2. TYLENOL [Concomitant]
  3. VESICARE [Concomitant]
  4. EFFEXOR [Concomitant]
  5. GEODON [Concomitant]
  6. CLONAZEPAM [Concomitant]
  7. FLEXERIL [Concomitant]
  8. SINGULAIR [Concomitant]
  9. BACLOFEN [Concomitant]
  10. SYNTHROID [Concomitant]
  11. TOPIRAMATE [Concomitant]
  12. LASIX (FUROSEMIDE /00032601/) [Concomitant]
  13. ALLEGRA [Concomitant]
  14. KLOR-CON [Concomitant]

REACTIONS (1)
  - DEEP VEIN THROMBOSIS [None]
